FAERS Safety Report 18447572 (Version 4)
Quarter: 2022Q1

REPORT INFORMATION
  Report Type: Spontaneous
  Country: US (occurrence: US)
  Receive Date: 20201101
  Receipt Date: 20220225
  Transmission Date: 20220423
  Serious: Yes (Other)
  Sender: FDA-Public Use
  Company Number: US-PFIZER INC-2020415102

PATIENT
  Age: 72 Year
  Sex: Female
  Weight: 45.36 kg

DRUGS (2)
  1. VYNDAMAX [Suspect]
     Active Substance: TAFAMIDIS
     Indication: Amyloidosis
     Dosage: 61 MG, 1X/DAY
     Route: 048
  2. TEGSEDI [Concomitant]
     Active Substance: INOTERSEN SODIUM
     Indication: Amyloidosis
     Dosage: 45 MG, WEEKLY
     Dates: start: 201803

REACTIONS (2)
  - Thyroid function test abnormal [Not Recovered/Not Resolved]
  - Off label use [Unknown]
